FAERS Safety Report 6533980-9 (Version None)
Quarter: 2010Q1

REPORT INFORMATION
  Report Type: 
  Country: None (occurrence: None)
  Receive Date: 20100112
  Receipt Date: 20100107
  Transmission Date: 20100710
  Serious: Yes (Other)
  Sender: FDA-Public Use
  Company Number: US-ROCHE-632854

PATIENT
  Sex: Female

DRUGS (6)
  1. PEGASYS [Suspect]
     Indication: HEPATITIS C
     Route: 058
     Dates: start: 20090301, end: 20090917
  2. RIBAVIRIN [Suspect]
     Indication: HEPATITIS C
     Route: 048
     Dates: start: 20090301, end: 20090317
  3. PROCRIT [Concomitant]
  4. DILANTIN [Concomitant]
  5. PHENOBARBITAL TAB [Concomitant]
  6. TOPAMAX [Concomitant]

REACTIONS (9)
  - CHOLECYSTECTOMY [None]
  - CONFUSIONAL STATE [None]
  - ENAMEL ANOMALY [None]
  - FEELING ABNORMAL [None]
  - HEPATIC ENZYME INCREASED [None]
  - HYPOAESTHESIA [None]
  - LOOSE TOOTH [None]
  - NAUSEA [None]
  - RED BLOOD CELL COUNT DECREASED [None]
